FAERS Safety Report 6932219-X (Version None)
Quarter: 2010Q3

REPORT INFORMATION
  Report Type: 
  Country: None (occurrence: None)
  Receive Date: 20100819
  Receipt Date: 20100810
  Transmission Date: 20110219
  Serious: Yes (Hospitalization)
  Sender: FDA-Public Use
  Company Number: US-ROCHE-719619

PATIENT
  Sex: Female

DRUGS (2)
  1. CAPECITABINE [Suspect]
     Route: 048
     Dates: start: 20100701, end: 20100707
  2. CAPECITABINE [Suspect]
     Route: 048
     Dates: start: 20100804

REACTIONS (4)
  - DIARRHOEA [None]
  - DYSPHAGIA [None]
  - OESOPHAGEAL DILATION PROCEDURE [None]
  - SKIN LESION [None]
